FAERS Safety Report 24201029 (Version 1)
Quarter: 2024Q3

REPORT INFORMATION
  Report Type: Spontaneous
  Country: PT (occurrence: PT)
  Receive Date: 20240812
  Receipt Date: 20240812
  Transmission Date: 20241017
  Serious: Yes (Other)
  Sender: JOHNSON AND JOHNSON
  Company Number: PT-BAYER-2024A115052

PATIENT
  Age: 77 Year
  Sex: Female

DRUGS (1)
  1. RIVAROXABAN [Suspect]
     Active Substance: RIVAROXABAN
     Indication: Atrial fibrillation
     Dosage: 20 MG
     Route: 048

REACTIONS (11)
  - Speech disorder [Unknown]
  - International normalised ratio [Unknown]
  - Cerebral small vessel ischaemic disease [Unknown]
  - Encephalopathy [Unknown]
  - Coma [Unknown]
  - Portal shunt procedure [Unknown]
  - Fatigue [Unknown]
  - Somnolence [Unknown]
  - Poverty of speech [Unknown]
  - Psychomotor retardation [Unknown]
  - Gait disturbance [Unknown]
